FAERS Safety Report 12795300 (Version 3)
Quarter: 2016Q4

REPORT INFORMATION
  Report Type: Spontaneous
  Country: US (occurrence: US)
  Receive Date: 20160929
  Receipt Date: 20161110
  Transmission Date: 20170207
  Serious: No
  Sender: FDA-Public Use
  Company Number: US-GLAXOSMITHKLINE-US2016GSK140509

PATIENT
  Age: 66 Year
  Sex: Female
  Weight: 72.56 kg

DRUGS (3)
  1. IMITREX [Suspect]
     Active Substance: SUMATRIPTAN SUCCINATE
     Indication: MIGRAINE
     Dosage: UNK UNK, PRN
     Dates: start: 1992, end: 201604
  2. SUMATRIPTAN (SUMATRIPTAN SUCCINATE) SOLUTION FOR INJECTION IN PRE-FILL [Suspect]
     Active Substance: SUMATRIPTAN
     Indication: MIGRAINE
     Dosage: 6 MG, PRN
     Route: 042
     Dates: start: 201609
  3. IMITREX [Suspect]
     Active Substance: SUMATRIPTAN SUCCINATE
     Dosage: UNK
     Dates: start: 20160907

REACTIONS (6)
  - Adverse event [Unknown]
  - Device use error [Unknown]
  - Device leakage [Unknown]
  - Product quality issue [Not Recovered/Not Resolved]
  - Neck pain [Not Recovered/Not Resolved]
  - Pain in extremity [Not Recovered/Not Resolved]

NARRATIVE: CASE EVENT DATE: 20160921
